FAERS Safety Report 4603229-2 (Version None)
Quarter: 2005Q1

REPORT INFORMATION
  Report Type: 
  Country: None (occurrence: None)
  Receive Date: 20050307
  Receipt Date: 20050223
  Transmission Date: 20050727
  Serious: Yes (Hospitalization, Other)
  Sender: FDA-Public Use
  Company Number: 2004118157

PATIENT
  Age: 79 Year
  Sex: Female
  Weight: 58 kg

DRUGS (3)
  1. ALDACTONE [Suspect]
     Indication: CARDIAC FAILURE
     Dosage: ORAL
     Route: 048
     Dates: start: 20021005
  2. FUROSEMIDE [Concomitant]
  3. CANDESARTAN CILEXETIL (CANDESARTAN CILEXETIL) [Concomitant]

REACTIONS (4)
  - ANTINUCLEAR ANTIBODY POSITIVE [None]
  - COLLAGEN DISORDER [None]
  - PERICARDIAL EFFUSION [None]
  - WEIGHT DECREASED [None]
